FAERS Safety Report 5960657-0 (Version None)
Quarter: 2008Q4

REPORT INFORMATION
  Report Type: 
  Country: None (occurrence: None)
  Receive Date: 20081120
  Receipt Date: 20080909
  Transmission Date: 20090506
  Serious: No
  Sender: FDA-Public Use
  Company Number: US-ABBOTT-08P-163-0474866-00

PATIENT
  Sex: Female
  Weight: 79.45 kg

DRUGS (2)
  1. BIAXIN [Suspect]
     Indication: GASTRITIS
     Route: 048
     Dates: start: 20080417, end: 20080501
  2. PREV PACK [Concomitant]
     Indication: GASTRITIS
     Dates: start: 20080417, end: 20080501

REACTIONS (9)
  - AGEUSIA [None]
  - ANOSMIA [None]
  - ANXIETY [None]
  - ASTHMA [None]
  - BLOOD PRESSURE INCREASED [None]
  - CHOKING SENSATION [None]
  - DYSGEUSIA [None]
  - HEART RATE INCREASED [None]
  - RASH [None]
